FAERS Safety Report 18787445 (Version 1)
Quarter: 2021Q1

REPORT INFORMATION
  Report Type: Spontaneous
  Country: US (occurrence: US)
  Receive Date: 20210125
  Receipt Date: 20210125
  Transmission Date: 20210419
  Serious: No
  Sender: FDA-Public Use
  Company Number: US-ROCHE-2668645

PATIENT
  Age: 46 Year
  Sex: Female
  Weight: 93.07 kg

DRUGS (3)
  1. PREDNISONE. [Concomitant]
     Active Substance: PREDNISONE
     Route: 048
  2. RITUXAN [Suspect]
     Active Substance: RITUXIMAB
     Indication: PEMPHIGUS
     Dosage: MOST RECENT DOSE RECEIVED ON 26/AUG/2020
     Route: 042
     Dates: start: 2019
  3. RITUXAN [Suspect]
     Active Substance: RITUXIMAB
     Indication: PEMPHIGUS

REACTIONS (3)
  - Intentional product use issue [Unknown]
  - Swelling [Not Recovered/Not Resolved]
  - Off label use [Unknown]

NARRATIVE: CASE EVENT DATE: 20200826
